FAERS Safety Report 5594318-7 (Version None)
Quarter: 2008Q1

REPORT INFORMATION
  Report Type: 
  Country: None (occurrence: None)
  Receive Date: 20080117
  Receipt Date: 20080114
  Transmission Date: 20080703
  Serious: Yes (Life-Threatening, Hospitalization)
  Sender: FDA-Public Use
  Company Number: PHRM2008FR00611

PATIENT
  Age: 39 Year
  Sex: Female

DRUGS (5)
  1. OFLOCET [Concomitant]
     Dosage: 400 MG, QD
     Route: 048
     Dates: start: 20070709, end: 20070914
  2. KEPPRA [Concomitant]
     Dosage: 500 MG, QID
     Route: 048
     Dates: end: 20070914
  3. RISPERDAL [Concomitant]
     Route: 048
     Dates: start: 20070905, end: 20070914
  4. ATARAX /POR/ [Concomitant]
     Dosage: 50 MG, QD
     Route: 048
     Dates: start: 20070905, end: 20070914
  5. TEGRETOL [Suspect]
     Dosage: UNK, UNK
     Route: 048

REACTIONS (15)
  - ANTICONVULSANT DRUG LEVEL ABOVE THERAPEUTIC [None]
  - BLOOD CREATINE PHOSPHOKINASE INCREASED [None]
  - BLOOD PRESSURE DECREASED [None]
  - CHEST X-RAY ABNORMAL [None]
  - COMA [None]
  - DIALYSIS [None]
  - ENDOTRACHEAL INTUBATION [None]
  - INTENTIONAL OVERDOSE [None]
  - LEUKOCYTOSIS [None]
  - MECHANICAL VENTILATION [None]
  - METABOLIC ACIDOSIS [None]
  - MYDRIASIS [None]
  - PNEUMONIA ASPIRATION [None]
  - RESPIRATORY ACIDOSIS [None]
  - RHABDOMYOLYSIS [None]
